FAERS Safety Report 21566524 (Version 2)
Quarter: 2023Q1

REPORT INFORMATION
  Report Type: Report from Study
  Country: DE (occurrence: DE)
  Receive Date: 20221108
  Receipt Date: 20230112
  Transmission Date: 20230417
  Serious: Yes (Hospitalization, Other)
  Sender: FDA-Public Use
  Company Number: DE-CELLTRION INC.-2022DE018261

PATIENT

DRUGS (6)
  1. RITUXIMAB [Suspect]
     Active Substance: RITUXIMAB
     Indication: Diffuse large B-cell lymphoma
     Dosage: 600 MILLIGRAM, EVERY 1 DAY
     Route: 042
     Dates: start: 20220810, end: 20220810
  2. IFOSFAMIDE [Suspect]
     Active Substance: IFOSFAMIDE
     Indication: Diffuse large B-cell lymphoma
     Dosage: 8000 MILLIGRAM, EVERY 1 DAY
     Route: 042
     Dates: start: 20220811, end: 20220812
  3. ETOPOSIDE [Suspect]
     Active Substance: ETOPOSIDE
     Indication: Diffuse large B-cell lymphoma
     Dosage: 160 MILLIGRAM
     Route: 042
     Dates: start: 20220811, end: 20220812
  4. CARBOPLATIN [Suspect]
     Active Substance: CARBOPLATIN
     Indication: Diffuse large B-cell lymphoma
     Dosage: 575 MILLIGRAM, EVERY 1 DAY
     Route: 042
     Dates: start: 20220811, end: 20220811
  5. POLATUZUMAB VEDOTIN [Suspect]
     Active Substance: POLATUZUMAB VEDOTIN
     Indication: Diffuse large B-cell lymphoma
     Dosage: 112 MILLIGRAM, EVERY 1 DAY
     Route: 042
     Dates: start: 20220810, end: 20220810
  6. SIMVASTATIN [Concomitant]
     Active Substance: SIMVASTATIN
     Dosage: 40 MILLIGRAM, EVERY 1 DAY
     Dates: start: 20120628

REACTIONS (2)
  - Bone marrow failure [Recovered/Resolved]
  - Product use issue [Unknown]

NARRATIVE: CASE EVENT DATE: 20220830
